FAERS Safety Report 4966420-1 (Version None)
Quarter: 2006Q2

REPORT INFORMATION
  Report Type: 
  Country: None (occurrence: None)
  Receive Date: 20060407
  Receipt Date: 20050414
  Transmission Date: 20061013
  Serious: Yes (Death, Hospitalization, Other)
  Sender: FDA-Public Use
  Company Number: US-MERCK-0504USA02313

PATIENT
  Age: 45 Year
  Sex: Male
  Weight: 85 kg

DRUGS (1)
  1. VIOXX [Suspect]
     Indication: ARTHRITIS
     Route: 048
     Dates: start: 20030301, end: 20040620

REACTIONS (16)
  - ARTERIOSCLEROSIS CORONARY ARTERY [None]
  - CARDIO-RESPIRATORY ARREST [None]
  - DIARRHOEA [None]
  - DYSPEPSIA [None]
  - FATIGUE [None]
  - GASTROOESOPHAGEAL REFLUX DISEASE [None]
  - HYPOTENSION [None]
  - INFECTION [None]
  - LUNG INFILTRATION [None]
  - MYOCARDIAL INFARCTION [None]
  - OSTEOPENIA [None]
  - RASH [None]
  - SINUS BRADYCARDIA [None]
  - SYNCOPE [None]
  - THYROID DISORDER [None]
  - WEIGHT DECREASED [None]
